FAERS Safety Report 19817410 (Version 1)
Quarter: 2021Q3

REPORT INFORMATION
  Report Type: Spontaneous
  Country: US (occurrence: US)
  Receive Date: 20210910
  Receipt Date: 20210910
  Transmission Date: 20211014
  Serious: Yes (Other)
  Sender: FDA-Public Use
  Company Number: US-MAYNE PHARMA-2021MYN000334

PATIENT

DRUGS (1)
  1. CLONIDINE. [Suspect]
     Active Substance: CLONIDINE
     Indication: HYPERTENSION
     Dosage: 0.3 MG, QWEEK
     Route: 062
     Dates: start: 2021

REACTIONS (3)
  - Hot flush [Unknown]
  - Confusional state [Unknown]
  - Product adhesion issue [Unknown]

NARRATIVE: CASE EVENT DATE: 2021
